FAERS Safety Report 24707327 (Version 1)
Quarter: 2024Q4

REPORT INFORMATION
  Report Type: Spontaneous
  Country: ID (occurrence: ID)
  Receive Date: 20241206
  Receipt Date: 20241206
  Transmission Date: 20250114
  Serious: Yes (Other)
  Sender: VIIV
  Company Number: ID-ViiV Healthcare-ID2024150561

PATIENT

DRUGS (3)
  1. LAMIVUDINE [Suspect]
     Active Substance: LAMIVUDINE
     Indication: HIV infection
     Dosage: 300 MG, QD
  2. DOLUTEGRAVIR [Suspect]
     Active Substance: DOLUTEGRAVIR
     Indication: HIV infection
     Dosage: 50 MG
  3. TENOFOVIR [Suspect]
     Active Substance: TENOFOVIR
     Indication: HIV infection
     Dosage: 300 MG, QD

REACTIONS (5)
  - Ophthalmic herpes zoster [Unknown]
  - Herpes zoster disseminated [Unknown]
  - Periorbital cellulitis [Unknown]
  - Pneumonia [Unknown]
  - Renal impairment [Unknown]
